FAERS Safety Report 4663605-9 (Version None)
Quarter: 2005Q2

REPORT INFORMATION
  Report Type: 
  Country: None (occurrence: None)
  Receive Date: 20050517
  Receipt Date: 20050422
  Transmission Date: 20051028
  Serious: Yes (Other)
  Sender: FDA-Public Use
  Company Number: BE-ROCHE-402870

PATIENT
  Age: 18 Year
  Sex: Male
  Weight: 55 kg

DRUGS (1)
  1. ROACCUTANE [Suspect]
     Indication: ACNE
     Route: 048
     Dates: start: 20040115, end: 20041115

REACTIONS (1)
  - BONE MARROW DEPRESSION [None]
